FAERS Safety Report 7250477-1 (Version None)
Quarter: 2011Q1

REPORT INFORMATION
  Report Type: 
  Country: None (occurrence: None)
  Receive Date: 20110128
  Receipt Date: 20110114
  Transmission Date: 20110831
  Serious: Yes (Death)
  Sender: FDA-Public Use
  Company Number: GB-ROCHE-755500

PATIENT
  Sex: Male
  Weight: 81 kg

DRUGS (2)
  1. OSELTAMIVIR [Suspect]
     Indication: PROPHYLAXIS
     Route: 042
     Dates: start: 20110105
  2. OSELTAMIVIR [Suspect]
     Route: 042

REACTIONS (1)
  - DEATH [None]
